FAERS Safety Report 7148786-X (Version None)
Quarter: 2010Q4

REPORT INFORMATION
  Report Type: 
  Country: None (occurrence: None)
  Receive Date: 20101209
  Receipt Date: 20101125
  Transmission Date: 20110411
  Serious: Yes (Hospitalization)
  Sender: FDA-Public Use
  Company Number: PHHO2010GB17961

PATIENT
  Sex: Male

DRUGS (1)
  1. DICLOFENAC SODIUM [Suspect]
     Indication: OSTEOARTHRITIS
     Dosage: 50 MG, 3 TIME(S) EVERY 1 DAY
     Route: 048
     Dates: start: 20081021

REACTIONS (1)
  - IRON METABOLISM DISORDER [None]
